FAERS Safety Report 5954048-6 (Version None)
Quarter: 2008Q4

REPORT INFORMATION
  Report Type: 
  Country: None (occurrence: None)
  Receive Date: 20081114
  Receipt Date: 20081103
  Transmission Date: 20090506
  Serious: Yes (Congenital Anomaly)
  Sender: FDA-Public Use
  Company Number: HU-PFIZER INC-2008095099

PATIENT
  Sex: Female
  Weight: 3.9 kg

DRUGS (1)
  1. ALPRAZOLAM [Suspect]
     Dosage: DAILY DOSE:30MG
     Route: 064

REACTIONS (2)
  - DRUG EXPOSURE DURING PREGNANCY [None]
  - HYPERTONIA [None]
